FAERS Safety Report 7273870-X (Version None)
Quarter: 2011Q1

REPORT INFORMATION
  Report Type: 
  Country: None (occurrence: None)
  Receive Date: 20110203
  Receipt Date: 20110125
  Transmission Date: 20110831
  Serious: Yes (Other)
  Sender: FDA-Public Use
  Company Number: PT-GILEAD-2011-0035068

PATIENT
  Age: 23 Year
  Sex: Male

DRUGS (2)
  1. VIREAD [Suspect]
     Indication: HEPATITIS B
  2. INTERFERON [Concomitant]
     Indication: HEPATITIS B
     Dates: start: 20060101

REACTIONS (3)
  - DRUG INEFFECTIVE [None]
  - VIRAL LOAD INCREASED [None]
  - GENOTYPE DRUG RESISTANCE TEST POSITIVE [None]
